FAERS Safety Report 19068986 (Version 1)
Quarter: 2021Q1

REPORT INFORMATION
  Report Type: Spontaneous
  Country: CN (occurrence: CN)
  Receive Date: 20210329
  Receipt Date: 20210329
  Transmission Date: 20210420
  Serious: Yes (Other)
  Sender: FDA-Public Use
  Company Number: CN-ROCHE-2796432

PATIENT
  Age: 74 Year
  Sex: Female

DRUGS (5)
  1. PREDNISONE. [Concomitant]
     Active Substance: PREDNISONE
     Indication: DIFFUSE LARGE B-CELL LYMPHOMA
  2. DOXORUBICIN [Concomitant]
     Active Substance: DOXORUBICIN
     Indication: DIFFUSE LARGE B-CELL LYMPHOMA
  3. RITUXIMAB. [Suspect]
     Active Substance: RITUXIMAB
     Indication: DIFFUSE LARGE B-CELL LYMPHOMA
     Route: 065
     Dates: start: 201806
  4. CYCLOPHOSPHAMIDE. [Concomitant]
     Active Substance: CYCLOPHOSPHAMIDE
     Indication: DIFFUSE LARGE B-CELL LYMPHOMA
  5. VINCRISTINE [Concomitant]
     Active Substance: VINCRISTINE
     Indication: DIFFUSE LARGE B-CELL LYMPHOMA

REACTIONS (16)
  - Decreased appetite [Recovering/Resolving]
  - Rash [Unknown]
  - Oedema [Unknown]
  - Platelet disorder [Unknown]
  - Protein urine [Unknown]
  - Myelosuppression [Recovering/Resolving]
  - Urinary occult blood positive [Unknown]
  - Malnutrition [Unknown]
  - Temperature intolerance [Unknown]
  - Hypoalbuminaemia [Unknown]
  - Drug ineffective [Unknown]
  - Bone marrow failure [Unknown]
  - Asthenia [Unknown]
  - Disease progression [Unknown]
  - Pyrexia [Unknown]
  - Pneumonitis [Unknown]
